FAERS Safety Report 4872679-1 (Version None)
Quarter: 2006Q1

REPORT INFORMATION
  Report Type: 
  Country: None (occurrence: None)
  Receive Date: 20060103
  Receipt Date: 20051222
  Transmission Date: 20060701
  Serious: Yes (Hospitalization)
  Sender: FDA-Public Use
  Company Number: EWC050945963

PATIENT
  Age: 58 Year
  Sex: Female
  Weight: 69.4 kg

DRUGS (1)
  1. DULOXETINE HYDROCHLORIDE (DULOXETINE HYDROCHLORIDE) CAPSULE [Suspect]
     Indication: STRESS INCONTINENCE
     Dosage: 40 MG, 2/D, ORAL
     Route: 048
     Dates: start: 20020108

REACTIONS (1)
  - CHOLELITHIASIS [None]
